FAERS Safety Report 6562619-1 (Version None)
Quarter: 2010Q1

REPORT INFORMATION
  Report Type: 
  Country: None (occurrence: None)
  Receive Date: 20100130
  Receipt Date: 20091119
  Transmission Date: 20100710
  Serious: No
  Sender: FDA-Public Use
  Company Number: US-ABBOTT-09P-163-0609675-00

PATIENT
  Sex: Female
  Weight: 75.364 kg

DRUGS (2)
  1. HUMIRA [Suspect]
     Indication: PSORIASIS
     Dates: start: 20090206, end: 20091105
  2. ORAL DIABETIC MEDICATION [Concomitant]
     Indication: DIABETES MELLITUS

REACTIONS (3)
  - FURUNCLE [None]
  - SINUSITIS [None]
  - UPPER RESPIRATORY TRACT INFECTION [None]
